FAERS Safety Report 9979398 (Version 1)
Quarter: 2014Q1

REPORT INFORMATION
  Report Type: Report from Study
  Country: US (occurrence: US)
  Receive Date: 20140306
  Receipt Date: 20140306
  Transmission Date: 20141002
  Serious: No
  Sender: FDA-Public Use
  Company Number: US-ABBVIE-13P-163-1172953-00

PATIENT
  Age: 53 Year
  Sex: Female
  Weight: 93.98 kg

DRUGS (7)
  1. HUMIRA [Suspect]
     Indication: ANKYLOSING SPONDYLITIS
     Dates: start: 201307, end: 20131118
  2. VICODIN [Suspect]
     Indication: MUSCLE STRAIN
     Dosage: 5/325 MG
     Dates: start: 201310, end: 201310
  3. PREDNISONE [Concomitant]
     Indication: ANKYLOSING SPONDYLITIS
  4. ESTRADIOL [Concomitant]
     Indication: HORMONE REPLACEMENT THERAPY
  5. PROTONIX [Concomitant]
     Indication: GASTROOESOPHAGEAL REFLUX DISEASE
  6. DILTIAZEM [Concomitant]
     Indication: GASTROOESOPHAGEAL REFLUX DISEASE
  7. ADVIL [Concomitant]
     Indication: PAIN

REACTIONS (6)
  - Muscle strain [Recovered/Resolved]
  - Injection site urticaria [Not Recovered/Not Resolved]
  - Diarrhoea [Not Recovered/Not Resolved]
  - Headache [Not Recovered/Not Resolved]
  - Urticaria [Recovered/Resolved]
  - Mobility decreased [Recovered/Resolved]
